FAERS Safety Report 5935340-8 (Version None)
Quarter: 2008Q4

REPORT INFORMATION
  Report Type: 
  Country: None (occurrence: None)
  Receive Date: 20081028
  Receipt Date: 20081020
  Transmission Date: 20090506
  Serious: Yes (Other)
  Sender: FDA-Public Use
  Company Number: STI-2008-03274

PATIENT
  Age: 15 Month
  Sex: Female

DRUGS (16)
  1. ERYTHROMYCIN [Suspect]
  2. MICONAZOLE [Suspect]
     Indication: FUNGAL INFECTION
     Dosage: 5 ML (2.5 ML, 2 IN 1 DAYS) ORAL
     Route: 048
     Dates: start: 20080919
  3. ACYCLOVIR [Concomitant]
  4. AMPHOTERICIN B [Concomitant]
  5. ASPIRIN (ACETYLYSALIICYLIC ACID) [Concomitant]
  6. CODEINE (CODEINE) [Concomitant]
  7. COLOMYCIN (COLISTIN) [Concomitant]
  8. CO-TRIMOXAZOLE (CO-TRIMOXAZOLE) [Concomitant]
  9. DIPYRIDAMOLE [Concomitant]
  10. GENTAMICIN [Concomitant]
  11. MAGNESIUM GLYCEROPHOSPHATE (MAGNESIUM GLYCEROPHOSPHATE) [Concomitant]
  12. MYCOPHENOLATE MOFETIL [Concomitant]
  13. OMEPRAZOLE [Concomitant]
  14. PREDNISONE [Concomitant]
  15. SODIUM BICARBONATE IN PLASTIC CONTAINER [Concomitant]
  16. URSODEOXYCHOLOC ACID (URSEODEOXYCHOLIC ACID) [Concomitant]

REACTIONS (3)
  - DRUG INTERACTION [None]
  - DRUG LEVEL INCREASED [None]
  - FUNGAL INFECTION [None]
